FAERS Safety Report 8338502-8 (Version None)
Quarter: 2012Q2

REPORT INFORMATION
  Report Type: 
  Country: None (occurrence: None)
  Receive Date: 20120504
  Receipt Date: 20120216
  Transmission Date: 20120825
  Serious: Yes (Other)
  Sender: FDA-Public Use
  Company Number: CH-US-EMD SERONO, INC.-7083780

PATIENT
  Sex: Female
  Weight: 52 kg

DRUGS (10)
  1. REBIF [Suspect]
     Indication: MULTIPLE SCLEROSIS
     Route: 058
     Dates: start: 20031001, end: 20060101
  2. METFORMIN HCL [Concomitant]
     Indication: DIABETES MELLITUS
     Route: 048
  3. FLUOXETINE [Concomitant]
     Indication: DEPRESSED MOOD
     Route: 048
     Dates: start: 20030101
  4. PK-MERZ [Concomitant]
     Indication: FATIGUE
     Route: 048
     Dates: start: 20110601
  5. REBIF [Suspect]
     Route: 058
     Dates: start: 20070101
  6. REBIF [Suspect]
     Route: 058
     Dates: start: 20060101, end: 20070101
  7. IBUPROFEN [Concomitant]
     Indication: OSTEOARTHRITIS
     Route: 048
     Dates: start: 20110516
  8. CONDROSULF [Concomitant]
     Indication: OSTEOARTHRITIS
     Route: 048
     Dates: start: 20110616
  9. ACETAMINOPHEN [Concomitant]
     Indication: INFLUENZA LIKE ILLNESS
     Route: 048
     Dates: start: 20030101
  10. METOZEROC [Concomitant]
     Indication: HYPERTENSION
     Route: 048
     Dates: start: 20030101

REACTIONS (1)
  - BREAST CANCER [None]
